FAERS Safety Report 8019322-0 (Version None)
Quarter: 2011Q4

REPORT INFORMATION
  Report Type: 
  Country: None (occurrence: None)
  Receive Date: 20111227
  Receipt Date: 20111216
  Transmission Date: 20120403
  Serious: Yes (Hospitalization)
  Sender: FDA-Public Use
  Company Number: OMPQ-PR-1112S-1932

PATIENT
  Age: 24 Year
  Sex: Female

DRUGS (1)
  1. OMNIPAQUE 70 [Suspect]
     Indication: CHEST PAIN
     Dosage: 100 ML, SINGLE DOSE, INTRAVENOUS
     Route: 042
     Dates: start: 20111214, end: 20111214

REACTIONS (3)
  - CARDIO-RESPIRATORY ARREST [None]
  - BLOOD PRESSURE INCREASED [None]
  - HEART RATE INCREASED [None]
